FAERS Safety Report 7906157-X (Version None)
Quarter: 2011Q4

REPORT INFORMATION
  Report Type: 
  Country: None (occurrence: None)
  Receive Date: 20111109
  Receipt Date: 20111109
  Transmission Date: 20120403
  Serious: No
  Sender: FDA-Public Use
  Company Number: None

PATIENT
  Age: 68 Year
  Sex: Female
  Weight: 56.246 kg

DRUGS (4)
  1. FORTEO [Suspect]
     Indication: OSTEOPOROSIS
     Dosage: 20 MCG 1 X DAY INJECTION
     Dates: start: 20110601, end: 20110620
  2. FORTEO [Suspect]
     Indication: OSTEOPOROSIS
     Dosage: 20 MCG 1 X DAY INJECTION
     Dates: start: 20110623, end: 20110628
  3. FORTEO [Suspect]
     Indication: OSTEOPOROSIS
     Dosage: 20 MCG 1 X DAY INJECTION
     Dates: start: 20111001, end: 20111003
  4. FORTEO [Suspect]
     Indication: OSTEOPOROSIS
     Dosage: 20 MCG 1 X DAY INJECTION
     Dates: start: 20110715, end: 20110902

REACTIONS (8)
  - ASTHENIA [None]
  - NAUSEA [None]
  - DYSPNOEA [None]
  - ARTHRALGIA [None]
  - FATIGUE [None]
  - BODY TEMPERATURE INCREASED [None]
  - RASH [None]
  - MALAISE [None]
